FAERS Safety Report 6064425-3 (Version None)
Quarter: 2009Q1

REPORT INFORMATION
  Report Type: 
  Country: None (occurrence: None)
  Receive Date: 20090203
  Receipt Date: 20090203
  Transmission Date: 20090719
  Serious: No
  Sender: FDA-Public Use
  Company Number: None

PATIENT
  Age: 29 Year
  Sex: Female
  Weight: 50.8029 kg

DRUGS (2)
  1. EFFEXOR XR [Suspect]
     Indication: ANXIETY
     Dosage: 150 MG, 75 MG, 37.5 MG ONCE A DAY PO
     Route: 048
     Dates: start: 20030101, end: 20090101
  2. EFFEXOR XR [Suspect]
     Indication: DEPRESSION
     Dosage: 150 MG, 75 MG, 37.5 MG ONCE A DAY PO
     Route: 048
     Dates: start: 20030101, end: 20090101

REACTIONS (12)
  - ABDOMINAL DISCOMFORT [None]
  - AGITATION [None]
  - AMNESIA [None]
  - APATHY [None]
  - CRYING [None]
  - DISTURBANCE IN ATTENTION [None]
  - DIZZINESS [None]
  - FATIGUE [None]
  - GASTROINTESTINAL DISORDER [None]
  - HEADACHE [None]
  - PARAESTHESIA [None]
  - QUALITY OF LIFE DECREASED [None]
